FAERS Safety Report 18256770 (Version 1)
Quarter: 2020Q3

REPORT INFORMATION
  Report Type: Spontaneous
  Country: AU (occurrence: AU)
  Receive Date: 20200911
  Receipt Date: 20200911
  Transmission Date: 20201103
  Serious: Yes (Death)
  Sender: FDA-Public Use
  Company Number: AU-BAYER-2020-189531

PATIENT
  Age: 65 Year
  Sex: Female

DRUGS (18)
  1. CLARATYNE [Suspect]
     Active Substance: LORATADINE
     Indication: VENTRICULAR TACHYCARDIA
  2. AMIODARONE [Suspect]
     Active Substance: AMIODARONE
     Indication: MYOCARDITIS
     Dosage: UNK
  3. METHYLPREDNISOLONE. [Suspect]
     Active Substance: METHYLPREDNISOLONE
     Indication: VENTRICULAR TACHYCARDIA
  4. ANTITHYMOCYTE IMMUNOGLOBULIN (RABBIT) [Suspect]
     Active Substance: LAPINE T-LYMPHOCYTE IMMUNE GLOBULIN
     Indication: MYOCARDITIS
  5. MYCOPHENOLATE [Suspect]
     Active Substance: MYCOPHENOLIC ACID
     Indication: VENTRICULAR TACHYCARDIA
  6. PREDNISONE. [Suspect]
     Active Substance: PREDNISONE
     Indication: VENTRICULAR TACHYCARDIA
  7. CLARATYNE [Suspect]
     Active Substance: LORATADINE
     Indication: MYOCARDITIS
     Dosage: UNK
  8. HYDROCORTISONE. [Suspect]
     Active Substance: HYDROCORTISONE
     Indication: MYOCARDITIS
  9. LIGNOCAINE [LIDOCAINE] [Suspect]
     Active Substance: LIDOCAINE
     Indication: VENTRICULAR TACHYCARDIA
  10. MYCOPHENOLATE [Suspect]
     Active Substance: MYCOPHENOLIC ACID
     Indication: MYOCARDITIS
  11. ANTITHYMOCYTE IMMUNOGLOBULIN (RABBIT) [Suspect]
     Active Substance: LAPINE T-LYMPHOCYTE IMMUNE GLOBULIN
     Indication: VENTRICULAR TACHYCARDIA
  12. HYDROCORTISONE. [Suspect]
     Active Substance: HYDROCORTISONE
     Indication: VENTRICULAR TACHYCARDIA
  13. METHYLPREDNISOLONE. [Suspect]
     Active Substance: METHYLPREDNISOLONE
     Indication: MYOCARDITIS
  14. PREDNISONE. [Suspect]
     Active Substance: PREDNISONE
     Indication: MYOCARDITIS
  15. AMIODARONE [Suspect]
     Active Substance: AMIODARONE
     Indication: VENTRICULAR TACHYCARDIA
  16. LIGNOCAINE [LIDOCAINE] [Suspect]
     Active Substance: LIDOCAINE
     Indication: MYOCARDITIS
  17. NORADRENALINE [NOREPINEPHRINE] [Concomitant]
     Active Substance: NOREPINEPHRINE
  18. VASOPRESSIN. [Concomitant]
     Active Substance: VASOPRESSIN
     Dosage: UNK

REACTIONS (1)
  - Oesophageal adenocarcinoma recurrent [Fatal]
